FAERS Safety Report 9681411 (Version 2)
Quarter: 2013Q4

REPORT INFORMATION
  Report Type: Report from Study
  Country: CA (occurrence: CA)
  Receive Date: 20131111
  Receipt Date: 20131111
  Transmission Date: 20140711
  Serious: Yes (Hospitalization, Other)
  Sender: FDA-Public Use
  Company Number: CA-ABBVIE-13P-028-1070989-00

PATIENT
  Age: 89 Year
  Sex: Female

DRUGS (4)
  1. HUMIRA [Suspect]
     Indication: RHEUMATOID ARTHRITIS
     Route: 058
     Dates: start: 20070817
  2. AGGRENOX [Suspect]
     Indication: PRODUCT USED FOR UNKNOWN INDICATION
     Dates: end: 201308
  3. NORVASC [Suspect]
     Indication: HYPERTENSION
     Route: 048
     Dates: end: 201310
  4. METHOTREXATE [Concomitant]

REACTIONS (9)
  - Ulcer [Unknown]
  - Deep vein thrombosis [Not Recovered/Not Resolved]
  - Oedema peripheral [Not Recovered/Not Resolved]
  - Pain in extremity [Not Recovered/Not Resolved]
  - Skin tightness [Not Recovered/Not Resolved]
  - Hypertension [Not Recovered/Not Resolved]
  - Cellulitis [Not Recovered/Not Resolved]
  - Unevaluable event [Unknown]
  - Emotional distress [Not Recovered/Not Resolved]
